FAERS Safety Report 6982811-1 (Version None)
Quarter: 2010Q3

REPORT INFORMATION
  Report Type: 
  Country: None (occurrence: None)
  Receive Date: 20100914
  Receipt Date: 20100406
  Transmission Date: 20110219
  Serious: No
  Sender: FDA-Public Use
  Company Number: US-PFIZER INC-2010043721

PATIENT
  Sex: Male
  Weight: 68.027 kg

DRUGS (6)
  1. LYRICA [Suspect]
     Indication: NEUROPATHY PERIPHERAL
     Dosage: 150 MG, 2X/DAY
     Route: 048
     Dates: start: 20090725, end: 20090701
  2. EFFEXOR [Suspect]
     Indication: ANTIDEPRESSANT THERAPY
     Dosage: 37.5 MG, 1X/DAY
     Route: 048
     Dates: start: 20100306, end: 20100101
  3. MONTELUKAST SODIUM [Concomitant]
     Indication: ASTHMA
     Dosage: 4 MG, 2X/DAY
     Route: 048
  4. XOPENEX [Concomitant]
     Indication: ASTHMA
     Dosage: 0.63 MG, EVERY 4 TO 6 HOURS
  5. PROVENTIL GENTLEHALER [Concomitant]
     Indication: ASTHMA
     Dosage: UNK; TWO PUFFS EVERY 4 HOURS
     Route: 055
  6. SYNTHROID [Concomitant]
     Indication: HYPOTHYROIDISM
     Dosage: 50 UG, 1X/DAY
     Route: 048

REACTIONS (1)
  - NAUSEA [None]
